FAERS Safety Report 10073508 (Version 1)
Quarter: 2014Q2

REPORT INFORMATION
  Report Type: Spontaneous
  Country: IT (occurrence: IT)
  Receive Date: 20140411
  Receipt Date: 20140411
  Transmission Date: 20141212
  Serious: Yes (Other)
  Sender: FDA-Public Use
  Company Number: IT-WATSON-2014-06963

PATIENT
  Age: 49 Year
  Sex: Female

DRUGS (2)
  1. CARBOPLATIN (UNKNOWN) [Suspect]
     Indication: OVARIAN CANCER
     Dosage: 420 MG, DAILY
     Route: 042
     Dates: start: 20140130, end: 20140220
  2. GEMCITABINE HYDROCHLORIDE [Concomitant]
     Indication: OVARIAN CANCER
     Dosage: 1790 MG, UNK
     Route: 042
     Dates: start: 20140130, end: 20140317

REACTIONS (4)
  - Dyspnoea [Recovered/Resolved]
  - Feeling hot [Recovered/Resolved]
  - Hyperhidrosis [Recovered/Resolved]
  - Rash [Recovered/Resolved]
